FAERS Safety Report 5903209-0 (Version None)
Quarter: 2008Q3

REPORT INFORMATION
  Report Type: 
  Country: None (occurrence: None)
  Receive Date: 20080930
  Receipt Date: 20080926
  Transmission Date: 20090109
  Serious: Yes (Hospitalization)
  Sender: FDA-Public Use
  Company Number: US-BRISTOL-MYERS SQUIBB COMPANY-14349732

PATIENT
  Age: 51 Year
  Sex: Female

DRUGS (8)
  1. CARBOPLATIN [Suspect]
     Indication: NON-SMALL CELL LUNG CANCER
     Dosage: INITIATED ON 27JUL07(450MG); LAST DOSE ON 14SEP07.
     Route: 042
     Dates: start: 20070906, end: 20070906
  2. PACLITAXEL [Suspect]
     Indication: NON-SMALL CELL LUNG CANCER
     Dosage: INITIATED ON 27JUL07;LAST DOSE ON 14SEP07
     Route: 042
     Dates: start: 20070906, end: 20070906
  3. TARCEVA [Suspect]
     Indication: NON-SMALL CELL LUNG CANCER
     Dosage: INITIATED ON 28-JUL-2007 TILL 11-SEP-2007
     Route: 048
     Dates: start: 20070910, end: 20070910
  4. LANTUS [Concomitant]
  5. ASPIRIN [Concomitant]
  6. CENTRUM [Concomitant]
  7. FISH OIL [Concomitant]
  8. INSULIN LISPRO [Concomitant]

REACTIONS (1)
  - ACUTE MYOCARDIAL INFARCTION [None]
